FAERS Safety Report 11324798 (Version 2)
Quarter: 2015Q4

REPORT INFORMATION
  Report Type: Spontaneous
  Country: US (occurrence: US)
  Receive Date: 20150730
  Receipt Date: 20151029
  Transmission Date: 20160304
  Serious: No
  Sender: FDA-Public Use
  Company Number: US-IMPAX LABORATORIES, INC-2015-IPXL-00562

PATIENT
  Sex: Female

DRUGS (3)
  1. RYTARY [Suspect]
     Active Substance: CARBIDOPA\LEVODOPA
     Dosage: 36.25/145 MG,3 TABLET, EVERY 4 HOURS
     Route: 065
     Dates: start: 20150324, end: 201503
  2. RYTARY [Suspect]
     Active Substance: CARBIDOPA\LEVODOPA
     Dosage: 36.25/145 MG,2 TABLET, EVERY 4HR
     Route: 065
     Dates: start: 201503, end: 20150327
  3. RYTARY [Suspect]
     Active Substance: CARBIDOPA\LEVODOPA
     Indication: PARKINSON^S DISEASE
     Dosage: 36.25/145 MG,2 TABLET, EVERY 4HR
     Route: 065
     Dates: start: 20150323, end: 20150323

REACTIONS (6)
  - Throat irritation [Unknown]
  - Drug ineffective [Unknown]
  - Dyskinesia [Recovering/Resolving]
  - Feeling abnormal [Unknown]
  - Psychotic behaviour [Recovered/Resolved]
  - Oral discomfort [Unknown]

NARRATIVE: CASE EVENT DATE: 201503
